FAERS Safety Report 6591532-9 (Version None)
Quarter: 2010Q1

REPORT INFORMATION
  Report Type: 
  Country: None (occurrence: None)
  Receive Date: 20100220
  Receipt Date: 20100205
  Transmission Date: 20100710
  Serious: No
  Sender: FDA-Public Use
  Company Number: KR-JNJFOC-20100202807

PATIENT
  Age: 53 Year
  Sex: Male

DRUGS (1)
  1. DURAGESIC-100 [Suspect]
     Indication: PROCTALGIA
     Dosage: 1 PATCH
     Route: 062

REACTIONS (3)
  - DRUG PRESCRIBING ERROR [None]
  - NAUSEA [None]
  - TREATMENT NONCOMPLIANCE [None]
